FAERS Safety Report 19765216 (Version 2)
Quarter: 2021Q3

REPORT INFORMATION
  Report Type: Report from Study
  Country: US (occurrence: US)
  Receive Date: 20210831
  Receipt Date: 20210914
  Transmission Date: 20211014
  Serious: No
  Sender: FDA-Public Use
  Company Number: NVSC2021US196466

PATIENT
  Sex: Male

DRUGS (1)
  1. KESIMPTA [Suspect]
     Active Substance: OFATUMUMAB
     Indication: MULTIPLE SCLEROSIS
     Dosage: 20 MG (INJECT)
     Route: 058

REACTIONS (5)
  - Headache [Unknown]
  - Pain [Unknown]
  - Chills [Unknown]
  - Influenza like illness [Unknown]
  - Asthenia [Unknown]
